FAERS Safety Report 6532814-6 (Version None)
Quarter: 2010Q1

REPORT INFORMATION
  Report Type: 
  Country: None (occurrence: None)
  Receive Date: 20100111
  Receipt Date: 20100107
  Transmission Date: 20100710
  Serious: Yes (Life-Threatening, Hospitalization, Other)
  Sender: FDA-Public Use
  Company Number: PHHY2009JP45672

PATIENT
  Sex: Female
  Weight: 53 kg

DRUGS (10)
  1. RASILEZ [Suspect]
     Indication: HYPERTENSION
     Dosage: 150 MG DAILY
     Route: 048
     Dates: start: 20091002, end: 20091011
  2. LASIX [Concomitant]
     Indication: POLYURIA
     Dosage: 40 MG, UNK
     Route: 048
     Dates: start: 20090726, end: 20091011
  3. CALCIUM CARBONATE [Concomitant]
     Dosage: 3 G, UNK
     Route: 048
     Dates: start: 20090224, end: 20091011
  4. CINACALCET HYDROCHLORIDE [Concomitant]
     Dosage: 50 MG, UNK
     Route: 048
     Dates: start: 20090526
  5. RISUMIC [Concomitant]
     Indication: PROCEDURAL HYPOTENSION
     Dosage: 10 MG, UNK
     Route: 048
     Dates: end: 20091009
  6. TAKEPRON [Concomitant]
     Dosage: 15 MG, UNK
     Route: 048
     Dates: start: 20090226
  7. MYSLEE [Concomitant]
     Indication: INSOMNIA
     Dosage: 5 MG, UNK
     Route: 048
     Dates: start: 20090725, end: 20091011
  8. EPOGIN [Concomitant]
     Dosage: 1500 IU, UNK
     Route: 058
     Dates: start: 20090411
  9. EPOGIN [Concomitant]
     Dosage: 3000 IU, UNK
     Route: 058
     Dates: end: 20091011
  10. OXAROL [Concomitant]
     Indication: PARATHYROID DISORDER
     Dosage: 1500 IU, UNK
     Route: 058
     Dates: start: 20090501, end: 20091009

REACTIONS (20)
  - ABNORMAL BEHAVIOUR [None]
  - ALTERED STATE OF CONSCIOUSNESS [None]
  - ANAEMIA [None]
  - APNOEA [None]
  - BLOOD ALBUMIN DECREASED [None]
  - BLOOD CALCIUM INCREASED [None]
  - BLOOD CREATININE INCREASED [None]
  - BLOOD POTASSIUM DECREASED [None]
  - BLOOD PRESSURE INCREASED [None]
  - BLOOD UREA INCREASED [None]
  - C-REACTIVE PROTEIN INCREASED [None]
  - DISORIENTATION [None]
  - DYSARTHRIA [None]
  - DYSKINESIA [None]
  - GAMMA-GLUTAMYLTRANSFERASE INCREASED [None]
  - HEADACHE [None]
  - HEART RATE INCREASED [None]
  - HYPOTONIA [None]
  - URINARY TRACT INFECTION [None]
  - WHITE BLOOD CELL COUNT DECREASED [None]
